FAERS Safety Report 5533445-7 (Version None)
Quarter: 2007Q4

REPORT INFORMATION
  Report Type: 
  Country: None (occurrence: None)
  Receive Date: 20071204
  Receipt Date: 20071122
  Transmission Date: 20080405
  Serious: Yes (Disabling, Other)
  Sender: FDA-Public Use
  Company Number: GB-PFIZER INC-2007094569

PATIENT
  Sex: Female
  Weight: 66 kg

DRUGS (2)
  1. CELEBREX [Suspect]
     Indication: ARTHRITIS
     Route: 048
     Dates: start: 20010101, end: 20071114
  2. CLOMIPRAMINE HCL [Concomitant]
     Route: 048
     Dates: start: 19740101, end: 20070901

REACTIONS (2)
  - BREAST CANCER IN SITU [None]
  - DEAFNESS [None]
